FAERS Safety Report 9238540 (Version 1)
Quarter: 2013Q2

REPORT INFORMATION
  Report Type: Spontaneous
  Country: US (occurrence: US)
  Receive Date: 20130418
  Receipt Date: 20130418
  Transmission Date: 20140414
  Serious: Yes (Other)
  Sender: FDA-Public Use
  Company Number: PHHY2013US037171

PATIENT
  Age: 77 Year
  Sex: Female

DRUGS (1)
  1. METOCLOPRAMIDE [Suspect]
     Indication: GASTROOESOPHAGEAL REFLUX DISEASE
     Dosage: 20 MG, DAILY

REACTIONS (11)
  - Fall [Recovering/Resolving]
  - Dysphonia [Recovering/Resolving]
  - Parkinsonism [Recovering/Resolving]
  - Muscle rigidity [Recovering/Resolving]
  - Gait disturbance [Recovering/Resolving]
  - Posture abnormal [Recovering/Resolving]
  - Tremor [Recovering/Resolving]
  - Movement disorder [Recovering/Resolving]
  - Masked facies [Recovering/Resolving]
  - Cogwheel rigidity [Recovering/Resolving]
  - Dysgraphia [Recovering/Resolving]
